FAERS Safety Report 7104231-1 (Version None)
Quarter: 2010Q4

REPORT INFORMATION
  Report Type: 
  Country: None (occurrence: None)
  Receive Date: 20101115
  Receipt Date: 20100526
  Transmission Date: 20110411
  Serious: No
  Sender: FDA-Public Use
  Company Number: US-ALLERGAN-1006965US

PATIENT
  Age: 73 Year
  Sex: Female
  Weight: 53.515 kg

DRUGS (3)
  1. BOTOXA? [Suspect]
     Indication: PRODUCT USED FOR UNKNOWN INDICATION
     Dosage: UNK
     Dates: start: 20100118, end: 20100118
  2. JUVEDERM [Concomitant]
     Indication: PRODUCT USED FOR UNKNOWN INDICATION
     Dosage: UNK
     Dates: start: 20100118, end: 20100118
  3. RADIESSE [Concomitant]
     Dosage: UNK
     Dates: start: 20100118, end: 20100118

REACTIONS (1)
  - FACIAL PARESIS [None]
